FAERS Safety Report 10879990 (Version 3)
Quarter: 2015Q3

REPORT INFORMATION
  Report Type: Report from Study
  Country: US (occurrence: US)
  Receive Date: 20150302
  Receipt Date: 20150811
  Transmission Date: 20151125
  Serious: Yes (Hospitalization, Other)
  Sender: FDA-Public Use
  Company Number: US-GILEAD-2015-0139539

PATIENT
  Age: 26 Year
  Sex: Female

DRUGS (21)
  1. AMBRISENTAN [Suspect]
     Active Substance: AMBRISENTAN
     Indication: MITRAL VALVE DISEASE
  2. NEURONTIN [Concomitant]
     Active Substance: GABAPENTIN
  3. CELLCEPT [Concomitant]
     Active Substance: MYCOPHENOLATE MOFETIL\MYCOPHENOLATE MOFETIL HYDROCHLORIDE
  4. TEGRETOL [Concomitant]
     Active Substance: CARBAMAZEPINE
  5. ENOXAPARIN [Concomitant]
     Active Substance: ENOXAPARIN
  6. FOSAMAX [Concomitant]
     Active Substance: ALENDRONATE SODIUM
  7. FERROUS GLUCONATE [Concomitant]
     Active Substance: FERROUS GLUCONATE
  8. FAMOTIDINE. [Concomitant]
     Active Substance: FAMOTIDINE
  9. ENALAPRIL [Concomitant]
     Active Substance: ENALAPRIL
  10. AMBRISENTAN [Suspect]
     Active Substance: AMBRISENTAN
     Indication: SYSTEMIC LUPUS ERYTHEMATOSUS
  11. ADCIRCA [Suspect]
     Active Substance: TADALAFIL
     Indication: PRODUCT USED FOR UNKNOWN INDICATION
     Route: 065
  12. WARFARIN [Concomitant]
     Active Substance: WARFARIN
  13. DEPO-ESTRADIOL [Concomitant]
     Active Substance: ESTRADIOL CYPIONATE
  14. VITAMIN D                          /00107901/ [Concomitant]
     Active Substance: ERGOCALCIFEROL
  15. COLCHICINE. [Concomitant]
     Active Substance: COLCHICINE
  16. PERCOCET [Concomitant]
     Active Substance: ACETAMINOPHEN\OXYCODONE HYDROCHLORIDE
  17. FOLIC ACID. [Concomitant]
     Active Substance: FOLIC ACID
  18. PREDNISONE. [Concomitant]
     Active Substance: PREDNISONE
  19. TOPAMAX [Concomitant]
     Active Substance: TOPIRAMATE
  20. VITAMIN E [Concomitant]
     Active Substance: .ALPHA.-TOCOPHEROL
  21. AMBRISENTAN [Suspect]
     Active Substance: AMBRISENTAN
     Indication: PULMONARY ARTERIAL HYPERTENSION
     Dosage: 10 MG, QD
     Route: 065
     Dates: start: 20130423

REACTIONS (3)
  - Pulmonary thrombosis [Unknown]
  - Chest pain [Not Recovered/Not Resolved]
  - Dyspnoea [Unknown]
